FAERS Safety Report 6931466-0 (Version None)
Quarter: 2010Q3

REPORT INFORMATION
  Report Type: 
  Country: None (occurrence: None)
  Receive Date: 20100819
  Receipt Date: 20100806
  Transmission Date: 20110219
  Serious: Yes (Hospitalization, Other)
  Sender: FDA-Public Use
  Company Number: US-ELI_LILLY_AND_COMPANY-US201008002766

PATIENT
  Sex: Female

DRUGS (3)
  1. HUMALOG [Suspect]
  2. APIDRA [Concomitant]
     Indication: DIABETES MELLITUS
  3. PRENATAL VITAMINS /01549301/ [Concomitant]

REACTIONS (5)
  - BLOOD GLUCOSE DECREASED [None]
  - CONVULSION [None]
  - DRUG EXPOSURE DURING PREGNANCY [None]
  - HOSPITALISATION [None]
  - PRE-ECLAMPSIA [None]
